FAERS Safety Report 17991995 (Version 1)
Quarter: 2020Q3

REPORT INFORMATION
  Report Type: Other
  Country: US (occurrence: US)
  Receive Date: 20200707
  Receipt Date: 20200707
  Transmission Date: 20201103
  Serious: Yes (Hospitalization, Other)
  Sender: FDA-Public Use
  Company Number: US-AMAG PHARMACEUTICALS, INC.-AMAG202002251

PATIENT
  Age: 30 Year
  Sex: Female
  Weight: 116.68 kg

DRUGS (1)
  1. MAKENA [Suspect]
     Active Substance: HYDROXYPROGESTERONE CAPROATE
     Indication: PREMATURE DELIVERY
     Dosage: 250 MG/ML, WEEKLY
     Route: 058
     Dates: start: 20200310, end: 20200616

REACTIONS (2)
  - Premature delivery [Recovered/Resolved]
  - Pre-eclampsia [Recovered/Resolved with Sequelae]

NARRATIVE: CASE EVENT DATE: 20200620
